FAERS Safety Report 7007256-X (Version None)
Quarter: 2010Q3

REPORT INFORMATION
  Report Type: 
  Country: None (occurrence: None)
  Receive Date: 20100920
  Receipt Date: 20100915
  Transmission Date: 20110219
  Serious: Yes (Other)
  Sender: FDA-Public Use
  Company Number: 1000016279

PATIENT
  Sex: Male

DRUGS (3)
  1. BYSTOLIC [Suspect]
     Indication: BLOOD PRESSURE
     Dosage: (5 MG)
  2. LISINOPRIL [Suspect]
     Indication: BLOOD PRESSURE
     Dosage: (40 MG)
  3. VIAGRA [Suspect]
     Dosage: (50 MG)

REACTIONS (1)
  - PEYRONIE'S DISEASE [None]
